FAERS Safety Report 9729256 (Version 1)
Quarter: 2013Q4

REPORT INFORMATION
  Report Type: Spontaneous
  Country: US (occurrence: None)
  Receive Date: 20131203
  Receipt Date: 20131203
  Transmission Date: 20140711
  Serious: Yes (Hospitalization)
  Sender: FDA-Public Use
  Company Number: None

PATIENT
  Age: 65 Year
  Sex: Male
  Weight: 83.3 kg

DRUGS (1)
  1. SULINDAC [Suspect]
     Indication: PAIN
     Route: 048
     Dates: start: 20130109, end: 20131130

REACTIONS (2)
  - Gastric haemorrhage [None]
  - Gastric ulcer [None]
